FAERS Safety Report 5870316-0 (Version None)
Quarter: 2008Q3

REPORT INFORMATION
  Report Type: 
  Country: None (occurrence: None)
  Receive Date: 20080904
  Receipt Date: 20070907
  Transmission Date: 20090109
  Serious: No
  Sender: FDA-Public Use
  Company Number: US-BRISTOL-MYERS SQUIBB COMPANY-13901020

PATIENT
  Age: 57 Year
  Sex: Male
  Weight: 106 kg

DRUGS (5)
  1. DEFINITY [Suspect]
     Indication: ECHOCARDIOGRAM
     Route: 042
     Dates: start: 20070907, end: 20070907
  2. ASPIRIN [Concomitant]
  3. NASONEX [Concomitant]
  4. PREDNISONE TAB [Concomitant]
  5. TOPROL-XL [Concomitant]

REACTIONS (1)
  - BACK PAIN [None]
